FAERS Safety Report 9220208 (Version 2)
Quarter: 2013Q3

REPORT INFORMATION
  Report Type: Spontaneous
  Country: DE (occurrence: None)
  Receive Date: 20130405
  Receipt Date: 20130702
  Transmission Date: 20140515
  Serious: Yes (Hospitalization)
  Sender: FDA-Public Use
  Company Number: IBUP20130005

PATIENT
  Age: 40 Year
  Sex: Female

DRUGS (1)
  1. IBUPROFEN [Suspect]
     Indication: HEADACHE
     Route: 048

REACTIONS (9)
  - Urticaria [None]
  - Angioedema [None]
  - Tachycardia [None]
  - Drug intolerance [None]
  - Burnout syndrome [None]
  - Anaphylactic reaction [None]
  - Self-medication [None]
  - Refusal of treatment by patient [None]
  - Drug hypersensitivity [None]
